FAERS Safety Report 8889996 (Version 1)
Quarter: 2012Q4

REPORT INFORMATION
  Report Type: 
  Country: FR (occurrence: FR)
  Receive Date: 20121107
  Receipt Date: 20121107
  Transmission Date: 20130627
  Serious: Yes (Other)
  Sender: FDA-Public Use
  Company Number: FR-JNJFOC-20121017311

PATIENT
  Age: 62 Year
  Sex: Female
  Weight: 55 kg

DRUGS (9)
  1. DUROGESIC [Suspect]
     Indication: PAIN
     Route: 062
     Dates: start: 201202
  2. LIPOSOMAL DOXORUBICIN [Suspect]
     Indication: BREAST CANCER METASTATIC
     Route: 042
     Dates: start: 20120322, end: 20120322
  3. LIPOSOMAL DOXORUBICIN [Suspect]
     Indication: BREAST CANCER METASTATIC
     Route: 042
     Dates: start: 20120507, end: 20120507
  4. LIPOSOMAL DOXORUBICIN [Suspect]
     Indication: BREAST CANCER METASTATIC
     Route: 042
     Dates: start: 20120620, end: 20120620
  5. LIPOSOMAL DOXORUBICIN [Suspect]
     Indication: BREAST CANCER METASTATIC
     Route: 042
     Dates: start: 20120711, end: 20120711
  6. LIPOSOMAL DOXORUBICIN [Suspect]
     Indication: BREAST CANCER METASTATIC
     Route: 042
     Dates: start: 20120213, end: 20120213
  7. LIPOSOMAL DOXORUBICIN [Suspect]
     Indication: BREAST CANCER METASTATIC
     Route: 042
     Dates: start: 20120530, end: 20120530
  8. ACTISKENAN [Suspect]
     Indication: PAIN
     Route: 048
     Dates: start: 201202
  9. GRANOCYTE [Concomitant]
     Indication: PROPHYLAXIS
     Route: 058
     Dates: start: 20120213, end: 20120220

REACTIONS (1)
  - Neutropenia [Recovered/Resolved]
